FAERS Safety Report 9665548 (Version 1)
Quarter: 2013Q4

REPORT INFORMATION
  Report Type: Spontaneous
  Country: US (occurrence: None)
  Receive Date: 20131031
  Receipt Date: 20131031
  Transmission Date: 20140711
  Serious: Yes (Hospitalization)
  Sender: FDA-Public Use
  Company Number: None

PATIENT
  Age: 79 Year
  Sex: Male
  Weight: 79 kg

DRUGS (13)
  1. WARFARIN [Suspect]
     Indication: ANTICOAGULANT THERAPY
     Route: 048
     Dates: end: 20110802
  2. AMIODARONE [Concomitant]
  3. BISACODYL [Concomitant]
  4. CEFEPIME [Concomitant]
  5. DIGOXIN [Concomitant]
  6. DOCUSATE [Concomitant]
  7. INSULIN ASPART [Concomitant]
  8. METOPROLOL [Concomitant]
  9. METRONIDAZOLE [Concomitant]
  10. RANITIDINE [Concomitant]
  11. SENNA [Concomitant]
  12. SIMVASTATIN [Concomitant]
  13. PNEUMOCCAL 23 VACCINE [Concomitant]

REACTIONS (4)
  - International normalised ratio increased [None]
  - Melaena [None]
  - Haemoglobin decreased [None]
  - Haemorrhage [None]
